FAERS Safety Report 7874184-7 (Version None)
Quarter: 2011Q4

REPORT INFORMATION
  Report Type: 
  Country: None (occurrence: None)
  Receive Date: 20111030
  Receipt Date: 20110516
  Transmission Date: 20120403
  Serious: No
  Sender: FDA-Public Use
  Company Number: US-AMGEN-USASP2011025310

PATIENT
  Age: 59 Year
  Sex: Female

DRUGS (2)
  1. LEFLUNOMIDE [Concomitant]
     Dosage: UNK
  2. ENBREL [Suspect]
     Indication: RHEUMATOID ARTHRITIS
     Dosage: 50 MG, QWK
     Dates: start: 20110428

REACTIONS (5)
  - INJECTION SITE ERYTHEMA [None]
  - HYPOAESTHESIA [None]
  - DIZZINESS [None]
  - PARAESTHESIA [None]
  - INJECTION SITE PRURITUS [None]
